FAERS Safety Report 8072744-4 (Version None)
Quarter: 2012Q1

REPORT INFORMATION
  Report Type: 
  Country: None (occurrence: None)
  Receive Date: 20120126
  Receipt Date: 20111202
  Transmission Date: 20120608
  Serious: No
  Sender: FDA-Public Use
  Company Number: US-ELI_LILLY_AND_COMPANY-US201112001828

PATIENT
  Sex: Male

DRUGS (2)
  1. ZYPREXA [Suspect]
     Dosage: 2.5 MG, UNK
     Route: 042
     Dates: start: 20111201
  2. ZYPREXA [Suspect]
     Dosage: 2.5 MG, UNK

REACTIONS (1)
  - INCORRECT ROUTE OF DRUG ADMINISTRATION [None]
